FAERS Safety Report 17165674 (Version 6)
Quarter: 2020Q1

REPORT INFORMATION
  Report Type: Spontaneous
  Country: US (occurrence: US)
  Receive Date: 20191217
  Receipt Date: 20200204
  Transmission Date: 20200409
  Serious: Yes (Hospitalization, Other)
  Sender: FDA-Public Use
  Company Number: US-PFIZER INC-2019122386

PATIENT
  Age: 82 Year
  Sex: Male
  Weight: 72 kg

DRUGS (4)
  1. FLOMAX [Concomitant]
     Active Substance: TAMSULOSIN HYDROCHLORIDE
     Indication: PROSTATIC DISORDER
     Dosage: 0.4 MG, UNK
  2. TOVIAZ [Suspect]
     Active Substance: FESOTERODINE FUMARATE
     Indication: POLLAKIURIA
     Dosage: 8 MG, 1X/DAY
     Dates: start: 201709
  3. METOPROLOL. [Concomitant]
     Active Substance: METOPROLOL
     Indication: CARDIAC DISORDER
     Dosage: UNK
  4. TOVIAZ [Suspect]
     Active Substance: FESOTERODINE FUMARATE
     Indication: INCONTINENCE
     Dosage: 8 MG, 1X/DAY
     Route: 048
     Dates: start: 201709

REACTIONS (10)
  - Peripheral swelling [Unknown]
  - Fluid retention [Unknown]
  - Constipation [Unknown]
  - Renal colic [Unknown]
  - Genitourinary symptom [Unknown]
  - Urinary tract infection [Recovered/Resolved]
  - Wound [Recovering/Resolving]
  - Urinary retention [Unknown]
  - Therapeutic product effect incomplete [Unknown]
  - Lower urinary tract symptoms [Recovered/Resolved]

NARRATIVE: CASE EVENT DATE: 2018
